FAERS Safety Report 8197685-3 (Version None)
Quarter: 2012Q1

REPORT INFORMATION
  Report Type: 
  Country: None (occurrence: None)
  Receive Date: 20120309
  Receipt Date: 20120301
  Transmission Date: 20120608
  Serious: Yes (Hospitalization, Other)
  Sender: FDA-Public Use
  Company Number: US-ABBOTT-12P-163-0910175-00

PATIENT
  Sex: Female
  Weight: 79.45 kg

DRUGS (13)
  1. ISOSORBIDE MONONITRATE [Concomitant]
     Indication: PRODUCT USED FOR UNKNOWN INDICATION
  2. PRILOSEC [Concomitant]
     Indication: PRODUCT USED FOR UNKNOWN INDICATION
  3. CALCIUM PLUS D [Concomitant]
     Indication: MINERAL SUPPLEMENTATION
  4. PLAQUENIL [Concomitant]
     Indication: PRODUCT USED FOR UNKNOWN INDICATION
  5. LANTUS [Concomitant]
     Indication: DIABETES MELLITUS
  6. GLUCOPHAGE [Concomitant]
     Indication: DIABETES MELLITUS
  7. LOPRESSOR [Concomitant]
     Indication: PRODUCT USED FOR UNKNOWN INDICATION
  8. COZAAR [Concomitant]
     Indication: PRODUCT USED FOR UNKNOWN INDICATION
  9. DITROPAN XL [Concomitant]
     Indication: PRODUCT USED FOR UNKNOWN INDICATION
  10. NIASPAN [Suspect]
     Indication: BLOOD CHOLESTEROL ABNORMAL
     Dates: start: 19970101, end: 20111101
  11. SULFASALAZINE [Concomitant]
     Indication: PRODUCT USED FOR UNKNOWN INDICATION
  12. LIPITOR [Concomitant]
     Indication: PRODUCT USED FOR UNKNOWN INDICATION
  13. ASPIRIN [Concomitant]
     Indication: PRODUCT USED FOR UNKNOWN INDICATION

REACTIONS (5)
  - BLOOD PRESSURE ABNORMAL [None]
  - FLUSHING [None]
  - MYOCARDIAL INFARCTION [None]
  - HEADACHE [None]
  - PALPITATIONS [None]
